FAERS Safety Report 10787877 (Version 1)
Quarter: 2015Q1

REPORT INFORMATION
  Report Type: Spontaneous
  Country: AU (occurrence: AU)
  Receive Date: 20150212
  Receipt Date: 20150212
  Transmission Date: 20150721
  Serious: No
  Sender: FDA-Public Use
  Company Number: AU-JNJFOC-20150200148

PATIENT
  Sex: Male

DRUGS (1)
  1. DUROGESIC [Suspect]
     Active Substance: FENTANYL
     Indication: PRODUCT USED FOR UNKNOWN INDICATION
     Dosage: 50 UG/HR + 12.5 UG/HR PATCHES IN COMBINATION
     Route: 062

REACTIONS (3)
  - Vomiting [Not Recovered/Not Resolved]
  - Wrong technique in drug usage process [Unknown]
  - Malaise [Not Recovered/Not Resolved]
